FAERS Safety Report 17861170 (Version 1)
Quarter: 2020Q2

REPORT INFORMATION
  Report Type: Spontaneous
  Country: US (occurrence: US)
  Receive Date: 20200604
  Receipt Date: 20200604
  Transmission Date: 20200714
  Serious: Yes (Disabling, Other)
  Sender: FDA-Public Use
  Company Number: US-NAPPMUNDI-USA-2020-0153567

PATIENT

DRUGS (2)
  1. PERCOCET                           /00446701/ [Suspect]
     Active Substance: ACETAMINOPHEN\OXYCODONE HYDROCHLORIDE\OXYCODONE TEREPHTHALATE
     Indication: TEMPOROMANDIBULAR JOINT SYNDROME
     Dosage: 10 MG, Q4H (10MG 6X A DAY)
     Route: 048
  2. OXYCONTIN [Suspect]
     Active Substance: OXYCODONE HYDROCHLORIDE
     Indication: TEMPOROMANDIBULAR JOINT SYNDROME
     Dosage: 160 MG, DAILY
     Route: 048

REACTIONS (4)
  - Impaired work ability [Unknown]
  - Drug dependence [Unknown]
  - Tooth loss [Unknown]
  - Disability [Unknown]
